FAERS Safety Report 8535326-3 (Version None)
Quarter: 2012Q3

REPORT INFORMATION
  Report Type: 
  Country: None (occurrence: None)
  Receive Date: 20120725
  Receipt Date: 20120712
  Transmission Date: 20120928
  Serious: Yes (Hospitalization)
  Sender: FDA-Public Use
  Company Number: IE-BIOGENIDEC-2012BI024058

PATIENT
  Age: 39 Year
  Sex: Male

DRUGS (4)
  1. LIORESAL [Concomitant]
     Indication: MUSCULOSKELETAL STIFFNESS
  2. TYSABRI [Suspect]
     Indication: RELAPSING-REMITTING MULTIPLE SCLEROSIS
     Route: 042
     Dates: start: 20080101
  3. REGURIN [Concomitant]
     Indication: POLLAKIURIA
     Dates: start: 20110928
  4. GABAPENTIN [Concomitant]
     Indication: NEURALGIA

REACTIONS (5)
  - EAR INFECTION [None]
  - LYMPHADENOPATHY [None]
  - JOINT SWELLING [None]
  - RECTAL HAEMORRHAGE [None]
  - DIARRHOEA [None]
